FAERS Safety Report 13983171 (Version 1)
Quarter: 2017Q3

REPORT INFORMATION
  Report Type: Spontaneous
  Country: IT (occurrence: IT)
  Receive Date: 20170918
  Receipt Date: 20170918
  Transmission Date: 20171128
  Serious: Yes (Death, Other)
  Sender: FDA-Public Use
  Company Number: IT-JNJFOC-20170912054

PATIENT

DRUGS (1)
  1. REMICADE [Suspect]
     Active Substance: INFLIXIMAB
     Indication: ACUTE GRAFT VERSUS HOST DISEASE
     Dosage: CONFLICTINGLY REPORTED AS EVERY DAY
     Route: 042

REACTIONS (12)
  - Pneumonia [Unknown]
  - Septic shock [Unknown]
  - Enteritis infectious [Unknown]
  - Bacterial sepsis [Unknown]
  - Pneumonia bacterial [Unknown]
  - Systemic candida [Fatal]
  - Pneumonia fungal [Fatal]
  - Encephalitis [Fatal]
  - Drug ineffective for unapproved indication [Unknown]
  - Bronchopulmonary aspergillosis [Unknown]
  - Cytomegalovirus infection [Unknown]
  - Off label use [Unknown]
